FAERS Safety Report 16216929 (Version 1)
Quarter: 2019Q2

REPORT INFORMATION
  Report Type: Spontaneous
  Country: US (occurrence: US)
  Receive Date: 20190315
  Receipt Date: 20190315
  Transmission Date: 20190711
  Serious: Yes (Hospitalization)
  Sender: FDA-Public Use
  Company Number: None

PATIENT
  Age: 41 Year
  Sex: Female
  Weight: 88.45 kg

DRUGS (1)
  1. GLATOPA [Suspect]
     Active Substance: GLATIRAMER ACETATE
     Indication: MULTIPLE SCLEROSIS

REACTIONS (8)
  - Dyspnoea [None]
  - Restlessness [None]
  - Cardiac flutter [None]
  - Extrasystoles [None]
  - Paraesthesia [None]
  - Fatigue [None]
  - Pruritus [None]
  - Hypoaesthesia [None]

NARRATIVE: CASE EVENT DATE: 201807
